FAERS Safety Report 17617846 (Version 2)
Quarter: 2020Q4

REPORT INFORMATION
  Report Type: Spontaneous
  Country: US (occurrence: US)
  Receive Date: 20200402
  Receipt Date: 20201005
  Transmission Date: 20210113
  Serious: Yes (Other)
  Sender: FDA-Public Use
  Company Number: US-ASTRAZENECA-2020SE42505

PATIENT
  Age: 74 Year
  Sex: Female
  Weight: 80.7 kg

DRUGS (88)
  1. NEXIUM [Suspect]
     Active Substance: ESOMEPRAZOLE MAGNESIUM
     Indication: ABDOMINAL DISCOMFORT
     Route: 048
     Dates: start: 20010201
  2. NEXIUM [Suspect]
     Active Substance: ESOMEPRAZOLE MAGNESIUM
     Indication: ABDOMINAL DISCOMFORT
     Dosage: GENERIC20.0MG UNKNOWN
     Route: 048
     Dates: start: 20180817, end: 20190818
  3. HYDROCODONE-ACETAMINOPHEN [Concomitant]
     Active Substance: ACETAMINOPHEN\HYDROCODONE
  4. ERGOCALCIFEROL. [Concomitant]
     Active Substance: ERGOCALCIFEROL
  5. CYANOCOBALAMIN. [Concomitant]
     Active Substance: CYANOCOBALAMIN
  6. LANSOPRAZOLE. [Concomitant]
     Active Substance: LANSOPRAZOLE
  7. PENICILLIN VK [Concomitant]
     Active Substance: PENICILLIN V POTASSIUM
  8. PSEUDOEPHEDRINE HCL [Concomitant]
     Active Substance: PSEUDOEPHEDRINE HYDROCHLORIDE
  9. TOBRAMYCIN. [Concomitant]
     Active Substance: TOBRAMYCIN
  10. CALCITONIN [Concomitant]
     Active Substance: CALCITONIN
  11. IRON [Concomitant]
     Active Substance: IRON
  12. INFLUENZA [Concomitant]
     Active Substance: INFLUENZA VIRUS VACCINE
  13. NEXIUM [Suspect]
     Active Substance: ESOMEPRAZOLE MAGNESIUM
     Indication: GASTROOESOPHAGEAL REFLUX DISEASE
     Dosage: 40.0MG UNKNOWN
     Route: 048
     Dates: start: 2001
  14. MENTHOL/SALICYLATE [Concomitant]
  15. CALCIUM CITRATE [Concomitant]
     Active Substance: CALCIUM CITRATE
  16. MELOXICAM. [Concomitant]
     Active Substance: MELOXICAM
  17. TRETINOIN. [Concomitant]
     Active Substance: TRETINOIN
  18. PITAVASTATIN. [Concomitant]
     Active Substance: PITAVASTATIN CALCIUM
  19. RABEPRAZOLE [Concomitant]
     Active Substance: RABEPRAZOLE
  20. NEXIUM [Suspect]
     Active Substance: ESOMEPRAZOLE MAGNESIUM
     Indication: GASTROOESOPHAGEAL REFLUX DISEASE
     Route: 048
     Dates: start: 20010201
  21. NEXIUM [Suspect]
     Active Substance: ESOMEPRAZOLE MAGNESIUM
     Indication: ABDOMINAL DISCOMFORT
     Dosage: 40.0MG UNKNOWN
     Route: 048
     Dates: start: 2001
  22. TUMS [Concomitant]
     Active Substance: CALCIUM CARBONATE
  23. GAVISCON [Concomitant]
     Active Substance: ALUMINUM HYDROXIDE\MAGNESIUM CARBONATE
  24. ADVAIR DISKUS [Concomitant]
     Active Substance: FLUTICASONE PROPIONATE\SALMETEROL XINAFOATE
  25. LIVALO [Concomitant]
     Active Substance: PITAVASTATIN CALCIUM
  26. PLAVIX [Concomitant]
     Active Substance: CLOPIDOGREL BISULFATE
  27. VALIUM [Concomitant]
     Active Substance: DIAZEPAM
  28. SIMVASTATIN. [Concomitant]
     Active Substance: SIMVASTATIN
  29. OMEPRAZOLE. [Concomitant]
     Active Substance: OMEPRAZOLE
  30. NEXIUM [Suspect]
     Active Substance: ESOMEPRAZOLE MAGNESIUM
     Indication: GASTROOESOPHAGEAL REFLUX DISEASE
     Dosage: GENERIC20.0MG UNKNOWN
     Route: 048
     Dates: start: 20180817, end: 20190818
  31. LISINOPRIL. [Concomitant]
     Active Substance: LISINOPRIL
     Indication: HYPERTENSION
     Dates: start: 2015
  32. VERAPAMIL [Concomitant]
     Active Substance: VERAPAMIL HYDROCHLORIDE
     Indication: HYPERTENSION
     Dates: start: 2015
  33. POVIDONE-IODINE. [Concomitant]
     Active Substance: POVIDONE-IODINE
  34. PROPARACAINE [Concomitant]
     Active Substance: PROPARACAINE
  35. CLARITIN [Concomitant]
     Active Substance: LORATADINE
  36. TIOTROPIUM [Concomitant]
     Active Substance: TIOTROPIUM
  37. LOVASTATIN. [Concomitant]
     Active Substance: LOVASTATIN
  38. CLINDAMYCIN. [Concomitant]
     Active Substance: CLINDAMYCIN
  39. PANTOPRAZOLE [Concomitant]
     Active Substance: PANTOPRAZOLE
  40. DICYCLOMINE [Concomitant]
     Active Substance: DICYCLOMINE HYDROCHLORIDE
  41. PSYLLIUM [Concomitant]
     Active Substance: PLANTAGO SEED
  42. DOCUSATE [Concomitant]
     Active Substance: DOCUSATE
  43. MAGNESIUM OXIDE. [Concomitant]
     Active Substance: MAGNESIUM OXIDE
  44. HYDROCHLOROTHIAZIDE. [Concomitant]
     Active Substance: HYDROCHLOROTHIAZIDE
     Indication: HYPERTENSION
     Dates: start: 2015
  45. PREDNISONE. [Concomitant]
     Active Substance: PREDNISONE
  46. AZITHROMYCIN ANHYDROUS. [Concomitant]
     Active Substance: AZITHROMYCIN ANHYDROUS
  47. SODIUM POLYSTYRENE SULF [Concomitant]
  48. BACITRACIN ZINC AND POLYMYXIN B SULFATE [Concomitant]
     Active Substance: BACITRACIN ZINC\POLYMYXIN B SULFATE
  49. ETODOLAC. [Concomitant]
     Active Substance: ETODOLAC
  50. COLYTE [Concomitant]
     Active Substance: POLYETHYLENE GLYCOL 3350\POTASSIUM CHLORIDE\SODIUM BICARBONATE\SODIUM CHLORIDE\SODIUM SULFATE
  51. FLUVASTATIN SODIUM. [Concomitant]
     Active Substance: FLUVASTATIN SODIUM
  52. MECLIZINE [Concomitant]
     Active Substance: MECLIZINE HYDROCHLORIDE
  53. GUAIFENESIN. [Concomitant]
     Active Substance: GUAIFENESIN
  54. AMPHETAMINE [Concomitant]
     Active Substance: AMPHETAMINE
  55. LEVOTHRYOXINE [Concomitant]
     Active Substance: LEVOTHYROXINE
     Indication: HYPOTHYROIDISM
     Dates: start: 2016, end: 2019
  56. TYLENOL [Concomitant]
     Active Substance: ACETAMINOPHEN
     Indication: PAIN
  57. SMP/ TMP [Concomitant]
  58. FLUTICASONE. [Concomitant]
     Active Substance: FLUTICASONE
  59. SODIUM CHLORIDE. [Concomitant]
     Active Substance: SODIUM CHLORIDE
  60. CALCIUM [Concomitant]
     Active Substance: CALCIUM
  61. FLUNISOLIDE. [Concomitant]
     Active Substance: FLUNISOLIDE
  62. AEROCHAMBER [Concomitant]
     Active Substance: DEVICE
  63. SALMETEROL [Concomitant]
     Active Substance: SALMETEROL
  64. TEMAZEPAM. [Concomitant]
     Active Substance: TEMAZEPAM
  65. SERTRALINE [Concomitant]
     Active Substance: SERTRALINE HYDROCHLORIDE
  66. CLORAZEPATE [Concomitant]
     Active Substance: CLORAZEPATE DIPOTASSIUM
  67. ALBUTEROL. [Concomitant]
     Active Substance: ALBUTEROL
  68. AMOXICILLIN. [Concomitant]
     Active Substance: AMOXICILLIN
  69. LIDOCAINE. [Concomitant]
     Active Substance: LIDOCAINE
  70. MULTIVITAMINS [Concomitant]
     Active Substance: VITAMINS
  71. DEXLANSOPRAZOLE [Concomitant]
     Active Substance: DEXLANSOPRAZOLE
  72. BISACODYL. [Concomitant]
     Active Substance: BISACODYL
  73. NIACIN. [Concomitant]
     Active Substance: NIACIN
  74. IBUPROFEN. [Concomitant]
     Active Substance: IBUPROFEN
  75. ARTIFICIAL TEARS [Concomitant]
     Active Substance: GLYCERIN\HYPROMELLOSES\POLYETHYLENE GLYCOL 400
  76. FERRITIN [Concomitant]
     Active Substance: FERRITIN
  77. HYDROXYZINE [Concomitant]
     Active Substance: HYDROXYZINE HYDROCHLORIDE
  78. CIPROFLOXACIN. [Concomitant]
     Active Substance: CIPROFLOXACIN
  79. METHYLPREDNISOLONE. [Concomitant]
     Active Substance: METHYLPREDNISOLONE
  80. BEVACIZUMAN [Concomitant]
  81. CARBAMIDE PEROXIDE [Concomitant]
     Active Substance: CARBAMIDE PEROXIDE
  82. FERROUS SULFATE. [Concomitant]
     Active Substance: FERROUS SULFATE
  83. MOMETASONE FUROATE. [Concomitant]
     Active Substance: MOMETASONE FUROATE
  84. ACETIC ACID. [Concomitant]
     Active Substance: ACETIC ACID
  85. METHYL SALICYLATE [Concomitant]
     Active Substance: METHYL SALICYLATE
  86. CYCLOBENZAPRINE. [Concomitant]
     Active Substance: CYCLOBENZAPRINE
  87. NAPROXEN. [Concomitant]
     Active Substance: NAPROXEN
  88. METRONIDAZOLE. [Concomitant]
     Active Substance: METRONIDAZOLE

REACTIONS (3)
  - Acute kidney injury [Unknown]
  - Chronic kidney disease [Not Recovered/Not Resolved]
  - Renal failure [Unknown]

NARRATIVE: CASE EVENT DATE: 2009
